FAERS Safety Report 4869605-8 (Version None)
Quarter: 2005Q4

REPORT INFORMATION
  Report Type: 
  Country: None (occurrence: None)
  Receive Date: 20051227
  Receipt Date: 20051210
  Transmission Date: 20060501
  Serious: Yes (Death, Other)
  Sender: FDA-Public Use
  Company Number: 2005BH003734

PATIENT
  Age: 5 Day
  Sex: Male
  Weight: 2.25 kg

DRUGS (4)
  1. STERILE WATER FOR INJECTION [Suspect]
     Indication: THERAPEUTIC PROCEDURE
     Dosage: IV
     Route: 042
     Dates: start: 20051127, end: 20051127
  2. RANITIDINE [Concomitant]
  3. MIDAZOLAM [Concomitant]
  4. DEXAMETHASONE TAB [Concomitant]

REACTIONS (5)
  - ANAPHYLACTIC SHOCK [None]
  - BRADYCARDIA [None]
  - HYPOTHERMIA [None]
  - LIVEDO RETICULARIS [None]
  - OXYGEN SATURATION DECREASED [None]
